FAERS Safety Report 6454412-5 (Version None)
Quarter: 2009Q4

REPORT INFORMATION
  Report Type: 
  Country: None (occurrence: None)
  Receive Date: 20091124
  Receipt Date: 20091111
  Transmission Date: 20100525
  Serious: Yes (Hospitalization, Other)
  Sender: FDA-Public Use
  Company Number: PHHY2009BR49725

PATIENT
  Sex: Female

DRUGS (2)
  1. DIOVAN HCT [Suspect]
     Dosage: UNK
     Dates: start: 20040101
  2. RASILEZ [Suspect]
     Dosage: UNK
     Dates: start: 20090201

REACTIONS (1)
  - PNEUMONIA [None]
